FAERS Safety Report 7647418-1 (Version None)
Quarter: 2011Q3

REPORT INFORMATION
  Report Type: 
  Country: None (occurrence: None)
  Receive Date: 20110801
  Receipt Date: 20110725
  Transmission Date: 20111222
  Serious: Yes (Other)
  Sender: FDA-Public Use
  Company Number: GB-ELI_LILLY_AND_COMPANY-GB201107007138

PATIENT
  Age: 40 Year
  Sex: Male

DRUGS (2)
  1. BYETTA [Suspect]
     Dosage: 5 UG, QD
     Dates: start: 20110602
  2. BYETTA [Suspect]
     Dosage: 5 UG, BID

REACTIONS (1)
  - EPILEPSY [None]
